FAERS Safety Report 25857378 (Version 1)
Quarter: 2025Q3

REPORT INFORMATION
  Report Type: Spontaneous
  Country: US (occurrence: US)
  Receive Date: 20250929
  Receipt Date: 20250929
  Transmission Date: 20251021
  Serious: Yes (Other)
  Sender: AUROBINDO
  Company Number: US-MLMSERVICE-20250827-PI627124-00129-1

PATIENT
  Age: 61 Year
  Sex: Male

DRUGS (4)
  1. DOXYCYCLINE [Suspect]
     Active Substance: DOXYCYCLINE
     Indication: Streptococcal bacteraemia
     Route: 065
  2. DOXYCYCLINE [Suspect]
     Active Substance: DOXYCYCLINE
     Indication: Zoonosis
  3. CEFTRIAXONE [Suspect]
     Active Substance: CEFTRIAXONE
     Indication: Streptococcal bacteraemia
     Route: 065
  4. CEFTRIAXONE [Suspect]
     Active Substance: CEFTRIAXONE
     Indication: Zoonosis

REACTIONS (2)
  - Drug ineffective [Unknown]
  - Photosensitivity reaction [Unknown]
